FAERS Safety Report 9565720 (Version 2)
Quarter: 2013Q3

REPORT INFORMATION
  Report Type: Spontaneous
  Country: US (occurrence: US)
  Receive Date: 20130930
  Receipt Date: 20130930
  Transmission Date: 20140515
  Serious: Yes (Death, Other)
  Sender: FDA-Public Use
  Company Number: US-GILEAD-2013-0082074

PATIENT
  Age: 77 Year
  Sex: Female

DRUGS (2)
  1. LETAIRIS [Suspect]
     Indication: PRODUCT USED FOR UNKNOWN INDICATION
     Dosage: 5 MG, UNK
     Route: 048
     Dates: start: 20120612
  2. OXYGEN [Concomitant]

REACTIONS (6)
  - Death [Fatal]
  - Immobile [Unknown]
  - Unevaluable event [Unknown]
  - Upper respiratory tract infection [Unknown]
  - Unevaluable event [Unknown]
  - General physical health deterioration [Unknown]
